FAERS Safety Report 9695462 (Version 2)
Quarter: 2013Q4

REPORT INFORMATION
  Report Type: Report from Study
  Country: US (occurrence: US)
  Receive Date: 20131119
  Receipt Date: 20131119
  Transmission Date: 20140711
  Serious: Yes (Death, Other)
  Sender: FDA-Public Use
  Company Number: US-ABBVIE-13P-163-1124224-00

PATIENT
  Age: 30 Year
  Sex: Male

DRUGS (2)
  1. DEPAKOTE ER [Suspect]
     Indication: PRODUCT USED FOR UNKNOWN INDICATION
     Route: 048
     Dates: start: 2005
  2. LAMICTAL [Concomitant]
     Indication: CONVULSION
     Route: 048
     Dates: start: 2005

REACTIONS (3)
  - Convulsion [Fatal]
  - Cardio-respiratory arrest [Unknown]
  - Treatment noncompliance [Unknown]
